FAERS Safety Report 6088570-1 (Version None)
Quarter: 2009Q1

REPORT INFORMATION
  Report Type: 
  Country: None (occurrence: None)
  Receive Date: 20090224
  Receipt Date: 20090217
  Transmission Date: 20090719
  Serious: Yes (Other)
  Sender: FDA-Public Use
  Company Number: DE-BIOGENIDEC-2008BI029988

PATIENT
  Age: 33 Year
  Sex: Female

DRUGS (1)
  1. AVONEX [Suspect]
     Indication: RELAPSING-REMITTING MULTIPLE SCLEROSIS
     Route: 030
     Dates: start: 20050601, end: 20081112

REACTIONS (5)
  - DYSPNOEA [None]
  - NEUROBORRELIOSIS [None]
  - RHINITIS ALLERGIC [None]
  - SARCOIDOSIS [None]
  - TOTAL LUNG CAPACITY DECREASED [None]
